FAERS Safety Report 9773111 (Version 1)
Quarter: 2013Q4

REPORT INFORMATION
  Report Type: Spontaneous
  Country: US (occurrence: None)
  Receive Date: 20131217
  Receipt Date: 20131217
  Transmission Date: 20140711
  Serious: Yes (Hospitalization)
  Sender: FDA-Public Use
  Company Number: 2013P1021767

PATIENT
  Age: 59 Year
  Sex: Female

DRUGS (3)
  1. FENTANYL [Suspect]
     Indication: CHEST PAIN
     Route: 042
  2. TRAZODONE [Suspect]
  3. DULOXETINE [Suspect]

REACTIONS (4)
  - Serotonin syndrome [None]
  - No therapeutic response [None]
  - Hypertension [None]
  - Drug interaction [None]
